FAERS Safety Report 24194431 (Version 1)
Quarter: 2024Q3

REPORT INFORMATION
  Report Type: Spontaneous
  Country: ES (occurrence: ES)
  Receive Date: 20240809
  Receipt Date: 20240809
  Transmission Date: 20241016
  Serious: Yes (Hospitalization, Other)
  Sender: VKT PHARMA PRIVATE LIMITED
  Company Number: ES-VKT-000580

PATIENT
  Age: 54 Year
  Sex: Male

DRUGS (6)
  1. LACOSAMIDE [Suspect]
     Active Substance: LACOSAMIDE
     Indication: Epilepsy
     Route: 065
  2. LACOSAMIDE [Suspect]
     Active Substance: LACOSAMIDE
     Indication: Alcohol withdrawal syndrome
     Route: 065
  3. VALPROATE [Suspect]
     Active Substance: VALPROIC ACID
     Indication: Epilepsy
     Route: 065
  4. VALPROATE [Suspect]
     Active Substance: VALPROIC ACID
     Indication: Alcohol withdrawal syndrome
     Route: 065
  5. LEVETIRACETAM [Suspect]
     Active Substance: LEVETIRACETAM
     Indication: Epilepsy
     Route: 065
  6. LEVETIRACETAM [Suspect]
     Active Substance: LEVETIRACETAM
     Indication: Alcohol withdrawal syndrome
     Route: 065

REACTIONS (12)
  - Disease recurrence [Unknown]
  - Status epilepticus [Unknown]
  - Partial seizures [Unknown]
  - Focal dyscognitive seizures [Unknown]
  - Cerebral small vessel ischaemic disease [Unknown]
  - Aphasia [Unknown]
  - Treatment noncompliance [Unknown]
  - Partial seizures with secondary generalisation [Unknown]
  - Cognitive disorder [Unknown]
  - Psychomotor hyperactivity [Unknown]
  - Hemiparesis [Unknown]
  - Facial paresis [Unknown]
